FAERS Safety Report 10522058 (Version 6)
Quarter: 2015Q2

REPORT INFORMATION
  Report Type: Spontaneous
  Country: US (occurrence: None)
  Receive Date: 20141014
  Receipt Date: 20150602
  Transmission Date: 20150821
  Serious: Yes (Hospitalization)
  Sender: FDA-Public Use
  Company Number: US-001308

PATIENT
  Age: 54 Year
  Sex: Female

DRUGS (12)
  1. POTASSIUM CHLORIDE. [Concomitant]
     Active Substance: POTASSIUM CHLORIDE
  2. LORATADINE. [Concomitant]
     Active Substance: LORATADINE
  3. SOLUTIONS FOR PARENTERAL NUTRITION [Concomitant]
     Active Substance: AMINO ACIDS\DEXTROSE\ELECTROLYTES NOS
  4. METHYLPHENIDATE [Concomitant]
     Active Substance: METHYLPHENIDATE
  5. LORTAB [Concomitant]
     Active Substance: ACETAMINOPHEN\HYDROCODONE BITARTRATE
  6. MAGNESIUM [Concomitant]
     Active Substance: MAGNESIUM
  7. GATTEX [Suspect]
     Active Substance: TEDUGLUTIDE\WATER
     Indication: SHORT-BOWEL SYNDROME
     Dosage: DF
     Route: 058
     Dates: start: 20140724, end: 201409
  8. CIMZIA [Concomitant]
     Active Substance: CERTOLIZUMAB PEGOL
  9. METHYLPREDNISOLONE. [Concomitant]
     Active Substance: METHYLPREDNISOLONE
  10. ONDANSETRON [Concomitant]
     Active Substance: ONDANSETRON
  11. ATIVAN [Concomitant]
     Active Substance: LORAZEPAM
  12. VITAMIN B12 [Concomitant]
     Active Substance: CYANOCOBALAMIN

REACTIONS (9)
  - Pyrexia [None]
  - Obstruction [None]
  - Device related infection [None]
  - Unevaluable event [None]
  - Therapy cessation [None]
  - Gastrointestinal stoma complication [None]
  - Thrombosis [None]
  - Nephrolithiasis [None]
  - Disease recurrence [None]

NARRATIVE: CASE EVENT DATE: 2014
